FAERS Safety Report 4444337-9 (Version None)
Quarter: 2004Q3

REPORT INFORMATION
  Report Type: 
  Country: None (occurrence: None)
  Receive Date: 20040813
  Receipt Date: 20040514
  Transmission Date: 20050211
  Serious: Yes (Hospitalization)
  Sender: FDA-Public Use
  Company Number: US-JNJFOC-20040702157

PATIENT
  Age: 12 Month
  Sex: Female
  Weight: 11.1131 kg

DRUGS (1)
  1. IBUPROFEN [Suspect]
     Indication: PYREXIA
     Dosage: 100 MG, 1 IN  1TOTAL, ORAL
     Route: 048

REACTIONS (1)
  - CONVULSION [None]
